FAERS Safety Report 19773279 (Version 2)
Quarter: 2021Q3

REPORT INFORMATION
  Report Type: Spontaneous
  Country: CA (occurrence: CA)
  Receive Date: 20210901
  Receipt Date: 20210924
  Transmission Date: 20211014
  Serious: Yes (Life-Threatening, Disabling, Other)
  Sender: FDA-Public Use
  Company Number: CA-TEVA-2021-CA-1947036

PATIENT
  Age: 9 Year
  Sex: Male
  Weight: 45 kg

DRUGS (74)
  1. BUSULFAN. [Suspect]
     Active Substance: BUSULFAN
     Indication: ACUTE MYELOID LEUKAEMIA
     Dosage: 44 MILLIGRAM DAILY;
     Route: 042
  2. INTERLEUKIN?2 [Suspect]
     Active Substance: ALDESLEUKIN
     Indication: ACUTE MYELOID LEUKAEMIA
     Route: 042
  3. ALTEPLASE. [Concomitant]
     Active Substance: ALTEPLASE
  4. AMBISOME [Concomitant]
     Active Substance: AMPHOTERICIN B
  5. ATROPINE. [Concomitant]
     Active Substance: ATROPINE
  6. CICLOSPORIN [Concomitant]
     Active Substance: CYCLOSPORINE
     Route: 065
  7. DIAZEPAM. [Concomitant]
     Active Substance: DIAZEPAM
     Route: 065
  8. GRANISETRON [Concomitant]
     Active Substance: GRANISETRON
     Route: 065
  9. HYDROXYZINE [Concomitant]
     Active Substance: HYDROXYZINE HYDROCHLORIDE
     Route: 065
  10. PHYTONADIONE. [Concomitant]
     Active Substance: PHYTONADIONE
     Route: 065
  11. PIPERACILLIN/TAZOBACTAM [Concomitant]
     Active Substance: PIPERACILLIN SODIUM\TAZOBACTAM SODIUM
     Route: 065
  12. PROPOFOL. [Concomitant]
     Active Substance: PROPOFOL
     Route: 065
  13. VANCOMYCIN [Concomitant]
     Active Substance: VANCOMYCIN
     Route: 065
  14. CYTARABINE INJECTION [Suspect]
     Active Substance: CYTARABINE
     Indication: ACUTE MYELOID LEUKAEMIA
     Route: 042
  15. INTERLEUKIN?2 [Suspect]
     Active Substance: ALDESLEUKIN
     Route: 042
  16. ACETAMINOPHEN. [Concomitant]
     Active Substance: ACETAMINOPHEN
  17. CEFOTAXIME [Concomitant]
     Active Substance: CEFOTAXIME SODIUM
     Route: 065
  18. DEXAMETHASONE. [Concomitant]
     Active Substance: DEXAMETHASONE
     Route: 014
  19. MESNA. [Concomitant]
     Active Substance: MESNA
     Route: 065
  20. TRIMETHOPRIM?SULFAMETHOXAZOLE [Concomitant]
     Active Substance: SULFAMETHOXAZOLE\TRIMETHOPRIM
     Route: 065
  21. CYCLOPHOSPHAMIDE. [Suspect]
     Active Substance: CYCLOPHOSPHAMIDE
     Indication: ACUTE MYELOID LEUKAEMIA
     Route: 042
  22. INTERLEUKIN?2 [Suspect]
     Active Substance: ALDESLEUKIN
     Indication: ACUTE MYELOID LEUKAEMIA
     Dosage: 2.52 MILLI?INTERNATIONAL UNIT DAILY;
     Route: 058
  23. ACYCLOVIR. [Concomitant]
     Active Substance: ACYCLOVIR
  24. ALLOPURINOL. [Concomitant]
     Active Substance: ALLOPURINOL
  25. CLOBAZAM. [Concomitant]
     Active Substance: CLOBAZAM
     Route: 065
  26. FILGRASTIM [Concomitant]
     Active Substance: FILGRASTIM
     Route: 065
  27. HEPARIN SODIUM. [Concomitant]
     Active Substance: HEPARIN SODIUM
     Route: 042
  28. PANTOPRAZOLE [Concomitant]
     Active Substance: PANTOPRAZOLE
     Route: 042
  29. SYNAGIS [Concomitant]
     Active Substance: PALIVIZUMAB
     Route: 030
  30. LEUCOVORIN CALCIUM. [Concomitant]
     Active Substance: LEUCOVORIN CALCIUM
     Route: 065
  31. ETOPOSIDE. [Suspect]
     Active Substance: ETOPOSIDE
     Indication: ACUTE MYELOID LEUKAEMIA
     Route: 042
  32. METHOTREXATE. [Suspect]
     Active Substance: METHOTREXATE
     Indication: ACUTE MYELOID LEUKAEMIA
     Route: 040
  33. DAUNORUBICIN HYDROCHLORIDE FOR INJECTION [Suspect]
     Active Substance: DAUNORUBICIN HYDROCHLORIDE
     Indication: ACUTE MYELOID LEUKAEMIA
     Route: 042
  34. MITOXANTRONE [Suspect]
     Active Substance: MITOXANTRONE HYDROCHLORIDE
     Indication: ACUTE MYELOID LEUKAEMIA
     Route: 042
  35. NALOXONE [Concomitant]
     Active Substance: NALOXONE
     Route: 065
  36. PENTAMIDINE ISETHIONATE INJ 300MG/VIAL BP [Concomitant]
     Route: 065
  37. PROTAMINE SULFATE INJECTION, USP [Concomitant]
     Active Substance: PROTAMINE SULFATE
     Route: 042
  38. INTERLEUKIN?2 [Suspect]
     Active Substance: ALDESLEUKIN
     Route: 042
  39. CYTARABINE. [Suspect]
     Active Substance: CYTARABINE
     Indication: ACUTE MYELOID LEUKAEMIA
     Route: 042
  40. LEVETIRACETAM. [Concomitant]
     Active Substance: LEVETIRACETAM
     Route: 065
  41. LORAZEPAM. [Concomitant]
     Active Substance: LORAZEPAM
     Route: 065
  42. MEROPENEM. [Concomitant]
     Active Substance: MEROPENEM
     Route: 042
  43. MIDAZOLAM (UNKNOWN) [Concomitant]
     Active Substance: MIDAZOLAM HYDROCHLORIDE
     Route: 065
  44. NYSTATIN. [Concomitant]
     Active Substance: NYSTATIN
     Route: 065
  45. ONDANSETRON [Concomitant]
     Active Substance: ONDANSETRON
     Route: 065
  46. FLUDARABINE [Suspect]
     Active Substance: FLUDARABINE PHOSPHATE
     Indication: ACUTE MYELOID LEUKAEMIA
     Route: 042
  47. INTRON A [Suspect]
     Active Substance: INTERFERON ALFA-2B
     Indication: ACUTE MYELOID LEUKAEMIA
     Dosage: 1 MILLI?INTERNATIONAL UNIT DAILY;
     Route: 058
  48. CEFTRIAXONE FOR INJECTION USP [Concomitant]
     Active Substance: CEFTRIAXONE
     Route: 030
  49. DEFIBROTIDE [Concomitant]
     Active Substance: DEFIBROTIDE (BOVINE)
     Route: 065
  50. DIMENHYDRINATE. [Concomitant]
     Active Substance: DIMENHYDRINATE
     Route: 042
  51. HYDROCORTISONE. [Concomitant]
     Active Substance: HYDROCORTISONE
     Route: 030
  52. LEUCOVORIN. [Concomitant]
     Active Substance: LEUCOVORIN
  53. METOCLOPRAMIDE. [Concomitant]
     Active Substance: METOCLOPRAMIDE
     Route: 065
  54. PYRIDOXINE [Concomitant]
     Active Substance: PYRIDOXINE
     Route: 065
  55. TOBRAMYCIN. [Concomitant]
     Active Substance: TOBRAMYCIN
     Route: 065
  56. IDARUBICIN [Suspect]
     Active Substance: IDARUBICIN
     Indication: ACUTE MYELOID LEUKAEMIA
     Route: 042
  57. DOCUSATE SODIUM. [Concomitant]
     Active Substance: DOCUSATE SODIUM
     Route: 065
  58. NIFEDIPINE. [Concomitant]
     Active Substance: NIFEDIPINE
     Route: 065
  59. POTASSIUM [Concomitant]
     Active Substance: POTASSIUM
     Route: 065
  60. SODIUM [Concomitant]
     Active Substance: SODIUM
     Route: 065
  61. TICARCILLIN +CLAVULANATE [Concomitant]
  62. FLUDARABINE PHOSPHATE. [Suspect]
     Active Substance: FLUDARABINE PHOSPHATE
     Indication: ACUTE MYELOID LEUKAEMIA
     Route: 042
  63. AMOXICILLIN. [Concomitant]
     Active Substance: AMOXICILLIN
  64. CASPOFUNGIN [Concomitant]
     Active Substance: CASPOFUNGIN
  65. FAMOTIDINE. [Concomitant]
     Active Substance: FAMOTIDINE
     Route: 065
  66. FENTANYL. [Concomitant]
     Active Substance: FENTANYL
     Route: 065
  67. FLUCONAZOLE. [Concomitant]
     Active Substance: FLUCONAZOLE
     Route: 065
  68. FUROSEMIDE. [Concomitant]
     Active Substance: FUROSEMIDE
     Route: 065
  69. MEPERIDINE [Concomitant]
     Active Substance: MEPERIDINE
     Route: 030
  70. METHYLPREDNISOLONE NOS [Concomitant]
     Active Substance: METHYLPREDNISOLONE
     Route: 065
  71. METRONIDAZOLE. [Concomitant]
     Active Substance: METRONIDAZOLE
     Route: 065
  72. MORPHINE [Concomitant]
     Active Substance: MORPHINE
     Route: 065
  73. RANITIDINE. [Concomitant]
     Active Substance: RANITIDINE
     Route: 065
  74. URSODEOXYCHOLIC ACID [Concomitant]
     Active Substance: URSODIOL
     Route: 065

REACTIONS (3)
  - Restrictive cardiomyopathy [Unknown]
  - Pulmonary hypertension [Unknown]
  - Heart transplant [Unknown]
